FAERS Safety Report 7634285-5 (Version None)
Quarter: 2011Q3

REPORT INFORMATION
  Report Type: 
  Country: None (occurrence: None)
  Receive Date: 20110725
  Receipt Date: 20110715
  Transmission Date: 20111222
  Serious: Yes (Hospitalization, Other)
  Sender: FDA-Public Use
  Company Number: US-ASTRAZENECA-2011SE34726

PATIENT
  Age: 58 Year
  Sex: Male

DRUGS (6)
  1. VANDETANIB [Suspect]
     Dosage: FILM COATED TABLET
     Route: 048
  2. FENTANYL [Concomitant]
     Indication: PAIN
     Dosage: 75 MICROGRAM PER HOUR, 72 HOURLY
     Route: 062
  3. OXYCODONE HCL [Concomitant]
     Indication: PAIN
     Route: 048
  4. SYNTHROID [Concomitant]
     Indication: HYPOTHYROIDISM
     Route: 048
  5. VANDETANIB [Suspect]
     Indication: THYROID CANCER
     Dosage: FILM COATED TABLET
     Route: 048
     Dates: start: 20110603, end: 20110606
  6. AMBIEN CR [Concomitant]
     Indication: INSOMNIA
     Route: 048

REACTIONS (3)
  - REHABILITATION THERAPY [None]
  - CONVULSION [None]
  - CEREBROVASCULAR ACCIDENT [None]
